FAERS Safety Report 4536439-3 (Version None)
Quarter: 2004Q4

REPORT INFORMATION
  Report Type: 
  Country: None (occurrence: None)
  Receive Date: 20041223
  Receipt Date: 20041025
  Transmission Date: 20050328
  Serious: No
  Sender: FDA-Public Use
  Company Number: US-GLAXOSMITHKLINE-A0531199A

PATIENT
  Age: 62 Year
  Sex: Female

DRUGS (3)
  1. FLONASE [Suspect]
     Indication: ILL-DEFINED DISORDER
     Dosage: 2PUFF AT NIGHT
     Route: 045
  2. ZOCOR [Concomitant]
  3. ZETIA [Concomitant]

REACTIONS (4)
  - EPISTAXIS [None]
  - NASAL CONGESTION [None]
  - NASAL DRYNESS [None]
  - VISION BLURRED [None]
